FAERS Safety Report 7232104-2 (Version None)
Quarter: 2011Q1

REPORT INFORMATION
  Report Type: 
  Country: None (occurrence: None)
  Receive Date: 20110119
  Receipt Date: 20110110
  Transmission Date: 20110831
  Serious: Yes (Other)
  Sender: FDA-Public Use
  Company Number: US-SHIRE-ALL1-2011-00089

PATIENT
  Sex: Male
  Weight: 90.703 kg

DRUGS (7)
  1. ACIPHEX [Concomitant]
     Indication: DYSPEPSIA
     Dosage: 20 MG, 1X/DAY:QD
     Route: 048
     Dates: start: 20090101
  2. VYTORIN [Concomitant]
     Indication: BLOOD CHOLESTEROL INCREASED
     Dosage: UNK MG, 1X/DAY:QD(10/20MG TABLET)
     Route: 048
  3. CALCIUM CITRATE [Concomitant]
     Indication: ROUTINE HEALTH MAINTENANCE
     Dosage: UNK MG, 1X/DAY:QD(4-UNKNOWN MG TABLETS)
     Route: 048
     Dates: start: 20100101
  4. MULTIVIT [Concomitant]
     Indication: ROUTINE HEALTH MAINTENANCE
     Dosage: UNK, 1X/DAY:QD (ONE CAPSULE)
     Route: 048
  5. FLORASTOR [Concomitant]
     Indication: PROBIOTIC THERAPY
     Dosage: 250 MG, 2X/DAY:BID
     Route: 048
  6. LIALDA [Suspect]
     Indication: COLITIS ULCERATIVE
     Dosage: 4.8 G, 1X/DAY:QD(4-1.2G TABLETS DAILY)
     Route: 048
     Dates: start: 20090801
  7. CLONAZEPAM [Concomitant]
     Indication: ANXIETY
     Dosage: 4 MG, 1X/DAY:QD(4-1MG TABLETS)
     Route: 048
     Dates: start: 20100901

REACTIONS (5)
  - MEDICATION RESIDUE [None]
  - MACULOPATHY [None]
  - GLAUCOMA [None]
  - RASH [None]
  - DRUG INEFFECTIVE [None]
